FAERS Safety Report 8848596 (Version 1)
Quarter: 2012Q4

REPORT INFORMATION
  Report Type: 
  Country: US (occurrence: US)
  Receive Date: 20121018
  Receipt Date: 20121018
  Transmission Date: 20130627
  Serious: Yes (Other)
  Sender: FDA-Public Use
  Company Number: US-ROCHE-GNE030183

PATIENT
  Age: 5 None
  Sex: Female
  Weight: 24.2 kg

DRUGS (2)
  1. NUTROPIN [Suspect]
     Indication: DWARFISM
     Route: 058
     Dates: start: 199707, end: 199708
  2. NUTROPIN [Suspect]
     Indication: GROWTH HORMONE DEFICIENCY

REACTIONS (3)
  - Pyrexia [Unknown]
  - Convulsion [Unknown]
  - Pneumonia [Unknown]
